FAERS Safety Report 15876920 (Version 1)
Quarter: 2019Q1

REPORT INFORMATION
  Report Type: Spontaneous
  Country: DE (occurrence: DE)
  Receive Date: 20190128
  Receipt Date: 20190128
  Transmission Date: 20190417
  Serious: Yes (Other)
  Sender: FDA-Public Use
  Company Number: DE-AUROBINDO-AUR-APL-2018-052158

PATIENT
  Age: 48 Year
  Sex: Male
  Weight: 96 kg

DRUGS (2)
  1. PANTOPRAZOLE [Suspect]
     Active Substance: PANTOPRAZOLE
     Indication: PROPHYLAXIS
     Dosage: AS NECESSARY
     Route: 065
  2. EDOXABAN [Suspect]
     Active Substance: EDOXABAN TOSYLATE
     Indication: EMBOLISM VENOUS
     Dosage: 60 MILLIGRAM, ONCE A DAY
     Route: 048
     Dates: start: 20180118

REACTIONS (2)
  - Duodenal ulcer [Not Recovered/Not Resolved]
  - Abdominal pain upper [Not Recovered/Not Resolved]

NARRATIVE: CASE EVENT DATE: 201806
